FAERS Safety Report 14763944 (Version 1)
Quarter: 2018Q2

REPORT INFORMATION
  Report Type: Spontaneous
  Country: ES (occurrence: ES)
  Receive Date: 20180416
  Receipt Date: 20180416
  Transmission Date: 20180711
  Serious: Yes (Death, Hospitalization)
  Sender: FDA-Public Use
  Company Number: ES-JUBILANT CADISTA PHARMACEUTICALS-2018JUB00116

PATIENT
  Age: 84 Year
  Sex: Male

DRUGS (1)
  1. VALSARTAN AND SACUBITRIL [Suspect]
     Active Substance: SACUBITRIL\VALSARTAN
     Dosage: 100 MG, 2X/DAY
     Route: 065

REACTIONS (4)
  - Pulmonary oedema [Fatal]
  - Ventricular tachycardia [Recovered/Resolved]
  - Delirium [Fatal]
  - Pneumonia [Fatal]
